FAERS Safety Report 8807987 (Version 1)
Quarter: 2012Q4

REPORT INFORMATION
  Report Type: 
  Country: RO (occurrence: RO)
  Receive Date: 20120925
  Receipt Date: 20120925
  Transmission Date: 20130627
  Serious: Yes (Hospitalization)
  Sender: FDA-Public Use
  Company Number: RO-JNJFOC-20120908251

PATIENT
  Sex: Male

DRUGS (1)
  1. REMICADE [Suspect]
     Indication: ANKYLOSING SPONDYLITIS
     Dosage: 4 bottles/8 week
     Route: 042
     Dates: start: 20110121, end: 20120406

REACTIONS (2)
  - Pulmonary tuberculosis [Recovering/Resolving]
  - Tuberculosis [Recovering/Resolving]
